FAERS Safety Report 17426184 (Version 1)
Quarter: 2020Q1

REPORT INFORMATION
  Report Type: Report from Study
  Country: None (occurrence: CA)
  Receive Date: 20200217
  Receipt Date: 20200217
  Transmission Date: 20200409
  Serious: Yes (Other)
  Sender: FDA-Public Use
  Company Number: CA-ABBVIE-20K-028-3278032-00

PATIENT
  Sex: Male

DRUGS (1)
  1. HUMIRA [Suspect]
     Active Substance: ADALIMUMAB
     Indication: CROHN^S DISEASE
     Route: 058
     Dates: start: 20191213

REACTIONS (8)
  - Urinary tract polyp [Not Recovered/Not Resolved]
  - Fistula [Unknown]
  - Malaise [Not Recovered/Not Resolved]
  - Anaemia [Not Recovered/Not Resolved]
  - Rash erythematous [Not Recovered/Not Resolved]
  - Skin fissures [Unknown]
  - Gallbladder polyp [Not Recovered/Not Resolved]
  - Frustration tolerance decreased [Not Recovered/Not Resolved]

NARRATIVE: CASE EVENT DATE: 2019
